FAERS Safety Report 10205953 (Version 1)
Quarter: 2014Q2

REPORT INFORMATION
  Report Type: Spontaneous
  Country: US (occurrence: US)
  Receive Date: 20140530
  Receipt Date: 20140530
  Transmission Date: 20141212
  Serious: Yes (Life-Threatening, Hospitalization, Other)
  Sender: FDA-Public Use
  Company Number: US-BRISTOL-MYERS SQUIBB COMPANY-20810057

PATIENT
  Sex: Male

DRUGS (7)
  1. ATAZANAVIR [Suspect]
  2. TRUVADA [Suspect]
     Indication: HIV INFECTION
  3. RITONAVIR [Suspect]
     Indication: HIV INFECTION
  4. EPZICOM [Suspect]
  5. ASPIRIN [Concomitant]
  6. CLOPIDOGREL BISULFATE [Concomitant]
  7. CARVEDILOL [Concomitant]
     Dates: start: 20140402

REACTIONS (2)
  - Myocardial infarction [Not Recovered/Not Resolved]
  - Drug dose omission [Unknown]
